FAERS Safety Report 7415739-3 (Version None)
Quarter: 2011Q2

REPORT INFORMATION
  Report Type: 
  Country: None (occurrence: None)
  Receive Date: 20110414
  Receipt Date: 20110405
  Transmission Date: 20111010
  Serious: Yes (Other)
  Sender: FDA-Public Use
  Company Number: US-B.I. PHARMACEUTICALS,INC./RIDGEFIELD-2011-BP-03399BP

PATIENT
  Age: 65 Year
  Sex: Male
  Weight: 126.55 kg

DRUGS (1)
  1. PRADAXA [Suspect]
     Indication: ATRIAL FIBRILLATION
     Dosage: 300 MG
     Dates: start: 20101201

REACTIONS (2)
  - HEPATIC FAILURE [None]
  - LIVER FUNCTION TEST ABNORMAL [None]
